FAERS Safety Report 4676604-8 (Version None)
Quarter: 2005Q2

REPORT INFORMATION
  Report Type: 
  Country: None (occurrence: None)
  Receive Date: 20050527
  Receipt Date: 20050224
  Transmission Date: 20051028
  Serious: Yes (Hospitalization, Disabling)
  Sender: FDA-Public Use
  Company Number: US-ROCHE-396658

PATIENT
  Age: 17 Year
  Sex: Female
  Weight: 52.2 kg

DRUGS (5)
  1. ACCUTANE [Suspect]
     Indication: ACNE
     Route: 048
     Dates: start: 19991227, end: 20000328
  2. ACCUTANE [Suspect]
     Route: 048
     Dates: start: 20000328, end: 20000404
  3. ACCUTANE [Suspect]
     Route: 048
     Dates: start: 20000404, end: 20000615
  4. ADDERALL 10 [Concomitant]
     Route: 048
  5. ZOLOFT [Concomitant]
     Indication: DEPRESSION
     Route: 048

REACTIONS (46)
  - ABDOMINAL PAIN [None]
  - ABDOMINAL TENDERNESS [None]
  - ANISOCYTOSIS [None]
  - AUTOIMMUNE DISORDER [None]
  - COAGULOPATHY [None]
  - COLITIS [None]
  - CROHN'S DISEASE [None]
  - DECREASED APPETITE [None]
  - DIARRHOEA [None]
  - DRUG LEVEL BELOW THERAPEUTIC [None]
  - FAECES DISCOLOURED [None]
  - FATIGUE [None]
  - GASTRIC HAEMORRHAGE [None]
  - GASTRIC PERFORATION [None]
  - GASTRIC ULCER [None]
  - GASTROINTESTINAL DISORDER [None]
  - GASTROINTESTINAL HAEMORRHAGE [None]
  - GASTROOESOPHAGEAL REFLUX DISEASE [None]
  - HAEMATOCHEZIA [None]
  - HAEMORRHOIDS [None]
  - HEADACHE [None]
  - HYPOCHROMASIA [None]
  - HYPOVOLAEMIA [None]
  - ILEITIS [None]
  - INFLAMMATORY BOWEL DISEASE [None]
  - INJURY [None]
  - INSOMNIA [None]
  - INTESTINAL HAEMORRHAGE [None]
  - IRON DEFICIENCY ANAEMIA [None]
  - LARGE INTESTINAL ULCER [None]
  - MICROCYTIC ANAEMIA [None]
  - MICROCYTOSIS [None]
  - MULTI-ORGAN DISORDER [None]
  - MUSCLE SPASMS [None]
  - NAUSEA [None]
  - PYREXIA [None]
  - RECTAL HAEMORRHAGE [None]
  - RED BLOOD CELL SEDIMENTATION RATE INCREASED [None]
  - SHOCK [None]
  - SMALL INTESTINE ULCER [None]
  - THROMBOSIS [None]
  - TREATMENT NONCOMPLIANCE [None]
  - VOMITING [None]
  - WEIGHT DECREASED [None]
  - WEIGHT INCREASED [None]
  - WHITE BLOOD CELLS STOOL POSITIVE [None]
